FAERS Safety Report 9701350 (Version 1)
Quarter: 2013Q4

REPORT INFORMATION
  Report Type: Spontaneous
  Country: US (occurrence: US)
  Receive Date: 20131121
  Receipt Date: 20131121
  Transmission Date: 20140711
  Serious: Yes (Disabling)
  Sender: FDA-Public Use
  Company Number: US-GILEAD-2008-0016657

PATIENT
  Age: 58 Year
  Sex: Male

DRUGS (10)
  1. LETAIRIS [Suspect]
     Indication: PULMONARY HYPERTENSION
     Route: 048
     Dates: start: 20080328, end: 20080329
  2. LASIX [Concomitant]
     Route: 048
  3. LISINOPRIL [Concomitant]
     Route: 048
  4. COREG [Concomitant]
     Route: 048
  5. DIGOXIN [Concomitant]
     Route: 048
  6. SYNTHROID [Concomitant]
     Route: 048
  7. ASA [Concomitant]
     Route: 048
  8. LANTUS [Concomitant]
  9. SYMBICORT [Concomitant]
     Route: 048
  10. VYTORIN [Concomitant]

REACTIONS (3)
  - Malaise [Recovered/Resolved]
  - Headache [Recovered/Resolved]
  - Paranasal sinus discomfort [Recovered/Resolved]
